FAERS Safety Report 16353689 (Version 1)
Quarter: 2019Q2

REPORT INFORMATION
  Report Type: Spontaneous
  Country: RU (occurrence: RU)
  Receive Date: 20190524
  Receipt Date: 20190524
  Transmission Date: 20190711
  Serious: Yes (Hospitalization)
  Sender: FDA-Public Use
  Company Number: RU-ASTRAZENECA-2019SE75108

PATIENT
  Age: 10 Year
  Sex: Male
  Weight: 55 kg

DRUGS (2)
  1. BERODUAL [Concomitant]
     Active Substance: FENOTEROL HYDROBROMIDE\IPRATROPIUM BROMIDE
  2. PULMICORT TURBUHALER [Suspect]
     Active Substance: BUDESONIDE
     Indication: ASTHMA
     Dosage: 0.5MG/ML TWO TIMES A DAY
     Route: 055
     Dates: start: 20190505

REACTIONS (5)
  - Nocturnal dyspnoea [Unknown]
  - Asthma [Unknown]
  - Dyspnoea [Unknown]
  - Product use issue [Unknown]
  - Tachycardia [Unknown]

NARRATIVE: CASE EVENT DATE: 20190505
